FAERS Safety Report 21658327 (Version 1)
Quarter: 2022Q4

REPORT INFORMATION
  Report Type: Spontaneous
  Country: US (occurrence: None)
  Receive Date: 20221128
  Receipt Date: 20221128
  Transmission Date: 20230112
  Serious: Yes (Death)
  Sender: FDA-Public Use
  Company Number: None

PATIENT
  Age: 58 Year
  Sex: Female

DRUGS (2)
  1. NAPROXEN [Suspect]
     Active Substance: NAPROXEN
  2. IBUPROFEN [Suspect]
     Active Substance: IBUPROFEN

REACTIONS (5)
  - Cardiac arrest [None]
  - Respiratory failure [None]
  - Haematochezia [None]
  - Brain injury [None]
  - Brain oedema [None]

NARRATIVE: CASE EVENT DATE: 20220714
